FAERS Safety Report 19705867 (Version 1)
Quarter: 2021Q3

REPORT INFORMATION
  Report Type: Other
  Country: US (occurrence: US)
  Receive Date: 20210817
  Receipt Date: 20210817
  Transmission Date: 20211014
  Serious: Yes (Other)
  Sender: FDA-Public Use
  Company Number: US-INTERCEPT-PM2021002439

PATIENT
  Sex: Female

DRUGS (2)
  1. URSODIOL. [Concomitant]
     Active Substance: URSODIOL
  2. OCALIVA [Suspect]
     Active Substance: OBETICHOLIC ACID
     Indication: PRIMARY BILIARY CHOLANGITIS
     Dosage: 5 MILLIGRAM, QD
     Route: 048
     Dates: start: 20170613

REACTIONS (5)
  - Skin lesion [Unknown]
  - Skin lesion removal [Unknown]
  - Diabetes mellitus inadequate control [Not Recovered/Not Resolved]
  - Chromaturia [Recovered/Resolved]
  - Hepatic pain [Recovered/Resolved]
